FAERS Safety Report 18749071 (Version 1)
Quarter: 2021Q1

REPORT INFORMATION
  Report Type: Spontaneous
  Country: US (occurrence: US)
  Receive Date: 20210116
  Receipt Date: 20210116
  Transmission Date: 20210419
  Serious: Yes (Hospitalization, Other)
  Sender: FDA-Public Use
  Company Number: US-CIPLA LTD.-2021US00160

PATIENT

DRUGS (2)
  1. VALACYCLOVIR [Suspect]
     Active Substance: VALACYCLOVIR HYDROCHLORIDE
     Indication: HERPES ZOSTER
     Dosage: 1000 MILLIGRAM, TID
     Route: 048
  2. VALACYCLOVIR [Suspect]
     Active Substance: VALACYCLOVIR HYDROCHLORIDE
     Dosage: 500 MILLIGRAM, DAILY
     Route: 048

REACTIONS (6)
  - Disorientation [Recovering/Resolving]
  - Drug titration error [Unknown]
  - Neurotoxicity [Recovering/Resolving]
  - Delirium [Recovering/Resolving]
  - Neurological decompensation [Recovering/Resolving]
  - Mental status changes [Recovering/Resolving]
